FAERS Safety Report 10365996 (Version 1)
Quarter: 2014Q3

REPORT INFORMATION
  Report Type: Spontaneous
  Country: US (occurrence: None)
  Receive Date: 20140805
  Receipt Date: 20140805
  Transmission Date: 20150326
  Serious: Yes (Other)
  Sender: FDA-Public Use
  Company Number: None

PATIENT
  Age: 61 Year
  Sex: Male
  Weight: 90.72 kg

DRUGS (2)
  1. SPIRONOLACTONE-HCTZ [Suspect]
     Active Substance: HYDROCHLOROTHIAZIDE\SPIRONOLACTONE
     Indication: HYPERTENSION
     Dosage: 25-25  1 TABLET DAILY IN THE AM MOUTH
     Route: 048
     Dates: start: 20140325, end: 20140717
  2. LISINOPRIL. [Concomitant]
     Active Substance: LISINOPRIL

REACTIONS (6)
  - Vertigo [None]
  - Nausea [None]
  - Breast pain [None]
  - Muscle spasms [None]
  - Abdominal pain [None]
  - Breast induration [None]

NARRATIVE: CASE EVENT DATE: 201404
